FAERS Safety Report 9474858 (Version 1)
Quarter: 2013Q3

REPORT INFORMATION
  Report Type: Spontaneous
  Country: NZ (occurrence: NZ)
  Receive Date: 20130823
  Receipt Date: 20130823
  Transmission Date: 20140515
  Serious: Yes (Death, Other)
  Sender: FDA-Public Use
  Company Number: NZ-ROCHE-1264264

PATIENT
  Sex: 0

DRUGS (1)
  1. CAPECITABINE [Suspect]
     Indication: PRODUCT USED FOR UNKNOWN INDICATION
     Route: 065
     Dates: start: 201308

REACTIONS (2)
  - Death [Fatal]
  - Intestinal ischaemia [Fatal]
